FAERS Safety Report 13974556 (Version 1)
Quarter: 2017Q3

REPORT INFORMATION
  Report Type: Spontaneous
  Country: US (occurrence: US)
  Receive Date: 20170915
  Receipt Date: 20170915
  Transmission Date: 20171128
  Serious: Yes (Hospitalization, Other)
  Sender: FDA-Public Use
  Company Number: US-FRESENIUS KABI-FK201707702

PATIENT
  Age: 74 Year
  Sex: Female

DRUGS (2)
  1. MORPHINE (MANUFACTURER UNKNOWN) [Suspect]
     Active Substance: MORPHINE
     Indication: PAIN
     Route: 037
  2. BUPIVACAINE (MANUFACTURER UNKNOWN) [Suspect]
     Active Substance: BUPIVACAINE
     Indication: PAIN
     Route: 037

REACTIONS (6)
  - Toxicity to various agents [Unknown]
  - Device malfunction [Unknown]
  - Anaesthetic complication [Unknown]
  - Accidental overdose [Unknown]
  - Neurogenic shock [Unknown]
  - Status epilepticus [Recovered/Resolved]
